FAERS Safety Report 7199115-7 (Version None)
Quarter: 2010Q4

REPORT INFORMATION
  Report Type: 
  Country: None (occurrence: None)
  Receive Date: 20101126
  Receipt Date: 20100503
  Transmission Date: 20110411
  Serious: Yes (Other)
  Sender: FDA-Public Use
  Company Number: CIP10001015

PATIENT
  Age: 74 Year
  Sex: Female

DRUGS (6)
  1. ACTONEL [Suspect]
     Indication: OSTEOPOROSIS
     Dosage: 150 MG ONCE MONTHLY, ORAL
     Route: 048
     Dates: start: 20090101, end: 20100101
  2. THYROID PREPARATIONS [Concomitant]
  3. DILANTIN /00017401/ (PHENYTOIN) [Concomitant]
  4. REQUIP [Concomitant]
  5. PHENOBARB /00023201/ (PHENOBARBITAL) [Concomitant]
  6. CALCIUM + VITAMIN D (CALCIUM, COLECALCIFEROL) [Concomitant]

REACTIONS (4)
  - BALANCE DISORDER [None]
  - FALL [None]
  - HIP FRACTURE [None]
  - JOINT INJURY [None]
